FAERS Safety Report 7720284-1 (Version None)
Quarter: 2011Q3

REPORT INFORMATION
  Report Type: 
  Country: None (occurrence: None)
  Receive Date: 20110831
  Receipt Date: 20110817
  Transmission Date: 20111222
  Serious: Yes (Other)
  Sender: FDA-Public Use
  Company Number: GB-UCBSA-039545

PATIENT

DRUGS (2)
  1. LEVETIRACETAM [Suspect]
     Route: 064
  2. CARBAMAZEPINE [Suspect]
     Route: 064

REACTIONS (3)
  - BILIRUBIN CONJUGATED [None]
  - UMBILICAL HERNIA [None]
  - MATERNAL EXPOSURE DURING PREGNANCY [None]
